FAERS Safety Report 9442834 (Version 1)
Quarter: 2013Q3

REPORT INFORMATION
  Report Type: Spontaneous
  Country: US (occurrence: US)
  Receive Date: 20130806
  Receipt Date: 20130806
  Transmission Date: 20140515
  Serious: Yes (Death)
  Sender: FDA-Public Use
  Company Number: US-FRI-1000047371

PATIENT
  Age: 16 Year
  Sex: Male

DRUGS (1)
  1. CELEXA [Suspect]
     Indication: MAJOR DEPRESSION
     Dosage: 30 MG
     Dates: start: 20130418, end: 20130520

REACTIONS (2)
  - Completed suicide [Fatal]
  - Off label use [Recovered/Resolved]
